FAERS Safety Report 5088282-7 (Version None)
Quarter: 2006Q3

REPORT INFORMATION
  Report Type: 
  Country: None (occurrence: None)
  Receive Date: 20060727
  Receipt Date: 20060613
  Transmission Date: 20061208
  Serious: Yes (Other)
  Sender: FDA-Public Use
  Company Number: 2006076793

PATIENT
  Age: 70 Year
  Sex: Male

DRUGS (5)
  1. LYRICA [Suspect]
     Indication: HERPES ZOSTER
     Dosage: 150 MG (75 MG 2 IN 1 D) UNKNOWN
     Route: 065
     Dates: start: 20060501
  2. PROZAC [Concomitant]
  3. ATENOLOL [Concomitant]
  4. HYDROCHLOROTHIAZIDE [Concomitant]
  5. VITAMINS (VITAMINS) [Concomitant]

REACTIONS (10)
  - ABNORMAL DREAMS [None]
  - DISTURBANCE IN SEXUAL AROUSAL [None]
  - DRUG INEFFECTIVE [None]
  - FALL [None]
  - GAIT DISTURBANCE [None]
  - HAEMATOSPERMIA [None]
  - HYPOAESTHESIA [None]
  - INCREASED APPETITE [None]
  - NOCTURNAL EMISSION [None]
  - WEIGHT INCREASED [None]
